FAERS Safety Report 6108431-9 (Version None)
Quarter: 2009Q1

REPORT INFORMATION
  Report Type: 
  Country: None (occurrence: None)
  Receive Date: 20090309
  Receipt Date: 20090226
  Transmission Date: 20090719
  Serious: Yes (Death)
  Sender: FDA-Public Use
  Company Number: PH-BAXTER-2009BH003383

PATIENT
  Age: 26 Year
  Sex: Male

DRUGS (1)
  1. DIANEAL [Suspect]
     Indication: RENAL DISORDER
     Route: 033
     Dates: start: 20081025, end: 20081201

REACTIONS (2)
  - PULMONARY CONGESTION [None]
  - THERAPY CESSATION [None]
